FAERS Safety Report 7716523-3 (Version None)
Quarter: 2011Q3

REPORT INFORMATION
  Report Type: 
  Country: None (occurrence: None)
  Receive Date: 20110829
  Receipt Date: 20110819
  Transmission Date: 20111222
  Serious: Yes (Other)
  Sender: FDA-Public Use
  Company Number: US-ASTRAZENECA-2011SE49840

PATIENT
  Sex: Female

DRUGS (7)
  1. EFFEXOR XR [Suspect]
     Indication: MANIA
  2. EFFEXOR XR [Suspect]
  3. NEXIUM [Suspect]
     Route: 048
  4. EFFEXOR XR [Suspect]
  5. VISTARIL [Suspect]
     Route: 065
  6. EFFEXOR XR [Suspect]
     Indication: PANIC ATTACK
  7. KLONOPIN [Concomitant]

REACTIONS (4)
  - FALL [None]
  - LIGAMENT SPRAIN [None]
  - ANKLE FRACTURE [None]
  - WRIST FRACTURE [None]
